FAERS Safety Report 13467112 (Version 1)
Quarter: 2017Q2

REPORT INFORMATION
  Report Type: Spontaneous
  Country: JP (occurrence: JP)
  Receive Date: 20170421
  Receipt Date: 20170421
  Transmission Date: 20170830
  Serious: Yes (Hospitalization)
  Sender: FDA-Public Use
  Company Number: JP-SA-2017SA068554

PATIENT
  Sex: Male

DRUGS (2)
  1. SOLOSTAR [Concomitant]
     Active Substance: DEVICE
  2. LANTUS SOLOSTAR [Suspect]
     Active Substance: INSULIN GLARGINE
     Dosage: START DATE : APPROXIMATELY 15 TO 20 YEAR DOSE:14 UNIT(S)
     Route: 058

REACTIONS (4)
  - Asthenia [Unknown]
  - Feeding disorder [Unknown]
  - Hospitalisation [Unknown]
  - Incorrect product storage [Unknown]
